FAERS Safety Report 4772436-0 (Version None)
Quarter: 2005Q3

REPORT INFORMATION
  Report Type: 
  Country: None (occurrence: None)
  Receive Date: 20050914
  Receipt Date: 20050824
  Transmission Date: 20060218
  Serious: Yes (Hospitalization)
  Sender: FDA-Public Use
  Company Number: 6016856

PATIENT
  Age: 74 Year
  Sex: Female

DRUGS (3)
  1. FELODUR ER (5 MG, TABLET) [Suspect]
     Indication: ESSENTIAL HYPERTENSION
     Dosage: 5 MG (5 MG, 1 D)   ORAL    LONG-TERM
     Route: 048
  2. ATENOLOL [Suspect]
     Indication: ESSENTIAL HYPERTENSION
     Dosage: 50 MG (50 MG,1D) ORAL   LONG-TERM
     Route: 048
  3. COVERSYL (8 MG, TABLET) (PERINDOPRIL) [Suspect]
     Indication: ESSENTIAL HYPERTENSION
     Dosage: 8 MG (8 MG,1 D)  ORAL   LONG-TERM
     Route: 048

REACTIONS (2)
  - DRUG INEFFECTIVE [None]
  - HYPERTENSION [None]
